FAERS Safety Report 6612859-8 (Version None)
Quarter: 2010Q1

REPORT INFORMATION
  Report Type: 
  Country: None (occurrence: None)
  Receive Date: 20100303
  Receipt Date: 20100225
  Transmission Date: 20100710
  Serious: Yes (Death, Life-Threatening, Hospitalization, Other)
  Sender: FDA-Public Use
  Company Number: DE-MERCK-1001DEU00073

PATIENT
  Age: 77 Year
  Sex: Male
  Weight: 106 kg

DRUGS (1)
  1. JANUMET [Suspect]
     Indication: TYPE 2 DIABETES MELLITUS
     Route: 048
     Dates: start: 20091116, end: 20091230

REACTIONS (2)
  - LACTIC ACIDOSIS [None]
  - RENAL FAILURE [None]
